FAERS Safety Report 16834049 (Version 1)
Quarter: 2019Q3

REPORT INFORMATION
  Report Type: Spontaneous
  Country: NL (occurrence: NL)
  Receive Date: 20190920
  Receipt Date: 20190920
  Transmission Date: 20191005
  Serious: Yes (Other)
  Sender: FDA-Public Use
  Company Number: PHBS2005NL15149

PATIENT
  Age: 33 Year
  Sex: Male

DRUGS (2)
  1. GLIVEC [Suspect]
     Active Substance: IMATINIB MESYLATE
     Indication: MEDULLARY THYROID CANCER
     Dosage: UNK, 600 MG/D
     Route: 048
  2. LEVOTHYROXINE. [Interacting]
     Active Substance: LEVOTHYROXINE
     Indication: MEDULLARY THYROID CANCER
     Dosage: UNK, 187.5 UG/D
     Route: 048

REACTIONS (6)
  - Drug interaction [Unknown]
  - Blood thyroid stimulating hormone increased [Recovered/Resolved]
  - Malignant neoplasm progression [Unknown]
  - Medullary thyroid cancer [Unknown]
  - Hypothyroidism [Recovered/Resolved]
  - Product use in unapproved indication [Unknown]
